FAERS Safety Report 13122434 (Version 1)
Quarter: 2017Q1

REPORT INFORMATION
  Report Type: Report from Study
  Country: US (occurrence: US)
  Receive Date: 20170117
  Receipt Date: 20170117
  Transmission Date: 20170428
  Serious: Yes (Hospitalization)
  Sender: FDA-Public Use
  Company Number: US-PFIZER INC-2017016094

PATIENT
  Age: 48 Year
  Sex: Male
  Weight: 102.4 kg

DRUGS (3)
  1. OXYCONTIN [Concomitant]
     Active Substance: OXYCODONE HYDROCHLORIDE
     Dosage: UNK
  2. ROXICODONE [Concomitant]
     Active Substance: OXYCODONE HYDROCHLORIDE
     Dosage: UNK
  3. BOSULIF [Suspect]
     Active Substance: BOSUTINIB MONOHYDRATE
     Indication: ACUTE LYMPHOCYTIC LEUKAEMIA
     Dosage: 200 MG, 1X/DAY
     Route: 048
     Dates: start: 201612

REACTIONS (12)
  - Diarrhoea [Recovering/Resolving]
  - Thinking abnormal [Recovering/Resolving]
  - White blood cell count increased [Recovering/Resolving]
  - Product use issue [Unknown]
  - Feeling abnormal [Recovering/Resolving]
  - Pain [Not Recovered/Not Resolved]
  - Abdominal discomfort [Recovering/Resolving]
  - Weight decreased [Recovering/Resolving]
  - Seizure [Recovering/Resolving]
  - Arthralgia [Recovering/Resolving]
  - Nausea [Recovering/Resolving]
  - Depression [Recovering/Resolving]

NARRATIVE: CASE EVENT DATE: 20161224
